FAERS Safety Report 7283713-6 (Version None)
Quarter: 2011Q1

REPORT INFORMATION
  Report Type: 
  Country: None (occurrence: None)
  Receive Date: 20110209
  Receipt Date: 20110131
  Transmission Date: 20110831
  Serious: Yes (Hospitalization, Other)
  Sender: FDA-Public Use
  Company Number: US-ASTRAZENECA-2011SE05267

PATIENT
  Age: 38 Year
  Sex: Female
  Weight: 76.7 kg

DRUGS (4)
  1. LAMICTAL [Concomitant]
  2. KLONOPIN [Concomitant]
  3. MOBIC [Concomitant]
  4. SEROQUEL XR [Suspect]
     Indication: BIPOLAR DISORDER
     Route: 048
     Dates: start: 20100101

REACTIONS (9)
  - HEMIPARESIS [None]
  - SUICIDE ATTEMPT [None]
  - MEDICAL OBSERVATION [None]
  - DYSARTHRIA [None]
  - DROOLING [None]
  - SEDATION [None]
  - GAIT DISTURBANCE [None]
  - DIPLOPIA [None]
  - WEIGHT DECREASED [None]
